FAERS Safety Report 12456924 (Version 1)
Quarter: 2016Q2

REPORT INFORMATION
  Report Type: Other
  Country: None (occurrence: US)
  Receive Date: 20160610
  Receipt Date: 20160610
  Transmission Date: 20160815
  Serious: Yes (Other)
  Sender: FDA-Public Use
  Company Number: US-GUTHY-RENKER LLC-1053682

PATIENT

DRUGS (4)
  1. BENADRYL, COUMADIN, LASIX, GABAPENTIN, SPIRONOLACTONE [Concomitant]
  2. IT COSMETICS BYE BYE FOUNDATION SPF 50 + [Suspect]
     Active Substance: TITANIUM DIOXIDE\ZINC OXIDE
     Indication: PHOTOSENSITIVITY REACTION
     Route: 061
     Dates: start: 20160524, end: 20160525
  3. CHEMOTHERAPEUTIC AGENTS [Concomitant]
  4. IT COSMETICS BYE BYE FOUNDATION SPF 50 + [Suspect]
     Active Substance: TITANIUM DIOXIDE\ZINC OXIDE
     Indication: PROPHYLAXIS
     Route: 061
     Dates: start: 20160524, end: 20160525

REACTIONS (3)
  - Application site urticaria [Recovered/Resolved]
  - Hypersensitivity [None]
  - Application site pruritus [None]

NARRATIVE: CASE EVENT DATE: 20160524
